FAERS Safety Report 24029634 (Version 1)
Quarter: 2024Q2

REPORT INFORMATION
  Report Type: Spontaneous
  Country: FR (occurrence: FR)
  Receive Date: 20240628
  Receipt Date: 20240628
  Transmission Date: 20240716
  Serious: Yes (Life-Threatening, Hospitalization)
  Sender: FDA-Public Use
  Company Number: None

PATIENT
  Age: 82 Year
  Sex: Male

DRUGS (2)
  1. DOXYCYCLINE [Suspect]
     Active Substance: DOXYCYCLINE\DOXYCYCLINE HYCLATE
     Indication: Infection
     Dosage: UNK
     Route: 048
     Dates: start: 20240522, end: 20240603
  2. RIFABUTIN [Suspect]
     Active Substance: RIFABUTIN
     Indication: Infection
     Dosage: UNK
     Route: 048
     Dates: start: 20240522, end: 20240603

REACTIONS (1)
  - Agranulocytosis [Not Recovered/Not Resolved]

NARRATIVE: CASE EVENT DATE: 20240603
